FAERS Safety Report 25864395 (Version 2)
Quarter: 2025Q4

REPORT INFORMATION
  Report Type: Spontaneous
  Country: JP (occurrence: JP)
  Receive Date: 20250930
  Receipt Date: 20251017
  Transmission Date: 20260117
  Serious: Yes (Hospitalization, Other)
  Sender: MERCK SHARP & DOHME LLC
  Company Number: JP-MSD-2412JPN002870JAA

PATIENT
  Age: 78 Year
  Sex: Male
  Weight: 66 kg

DRUGS (9)
  1. JANUVIA [Suspect]
     Active Substance: SITAGLIPTIN PHOSPHATE
     Indication: Type 2 diabetes mellitus
     Dosage: DOSE DESCRIPTION : 50 MILLIGRAM/DAY
     Route: 048
     Dates: start: 2011
  2. JANUVIA [Suspect]
     Active Substance: SITAGLIPTIN PHOSPHATE
     Indication: Type 2 diabetes mellitus
     Dosage: DOSE DESCRIPTION : 100 MILLIGRAM/DAY
     Route: 048
     Dates: end: 201408
  3. LINAGLIPTIN [Suspect]
     Active Substance: LINAGLIPTIN
     Indication: Type 2 diabetes mellitus
     Dosage: DOSE DESCRIPTION : 5 MILLIGRAM/DAY
     Dates: start: 201408, end: 2014
  4. ALOGLIPTIN BENZOATE [Suspect]
     Active Substance: ALOGLIPTIN BENZOATE
     Indication: Type 2 diabetes mellitus
     Dosage: DOSE DESCRIPTION : 6.25 MILLIGRAM/DAY
     Dates: start: 20150508, end: 20160308
  5. TENELIGLIPTIN HYDROBROMIDE ANHYDROUS [Suspect]
     Active Substance: TENELIGLIPTIN HYDROBROMIDE ANHYDROUS
     Indication: Type 2 diabetes mellitus
     Dosage: DOSE DESCRIPTION : 20 MILLIGRAM/DAY
     Dates: start: 20160508, end: 20200508
  6. PREDNISOLONE [Concomitant]
     Active Substance: PREDNISOLONE
     Dosage: DOSE DESCRIPTION : 30 MILLIGRAM
     Dates: start: 2018
  7. NIFEDIPINE [Concomitant]
     Active Substance: NIFEDIPINE
  8. TELMISARTAN [Concomitant]
     Active Substance: TELMISARTAN
  9. FUROSEMIDE [Concomitant]
     Active Substance: FUROSEMIDE

REACTIONS (5)
  - Kidney fibrosis [Unknown]
  - Tubulointerstitial nephritis [Unknown]
  - Glomerulonephritis membranous [Unknown]
  - Pemphigoid [Unknown]
  - Chronic kidney disease [Unknown]

NARRATIVE: CASE EVENT DATE: 20200101
